FAERS Safety Report 5673629-0 (Version None)
Quarter: 2008Q1

REPORT INFORMATION
  Report Type: 
  Country: None (occurrence: None)
  Receive Date: 20080319
  Receipt Date: 20080307
  Transmission Date: 20080703
  Serious: Yes (Life-Threatening, Hospitalization, Disabling, Other)
  Sender: FDA-Public Use
  Company Number: GB-PFIZER INC-2008019343

PATIENT
  Sex: Male

DRUGS (4)
  1. PHENYTOIN SODIUM [Suspect]
     Indication: EPILEPSY
     Route: 048
  2. ACETYLSALICYLIC ACID [Concomitant]
  3. AMOXICILLIN [Concomitant]
  4. PREDNISOLONE [Concomitant]

REACTIONS (3)
  - DYSPNOEA [None]
  - RENAL FAILURE [None]
  - RESPIRATORY FAILURE [None]
